FAERS Safety Report 4747063-1 (Version None)
Quarter: 2005Q3

REPORT INFORMATION
  Report Type: 
  Country: None (occurrence: None)
  Receive Date: 20050815
  Receipt Date: 20050809
  Transmission Date: 20060218
  Serious: Yes (Hospitalization)
  Sender: FDA-Public Use
  Company Number: OMPQ-PR-0508S-1140

PATIENT
  Age: 68 Year
  Sex: Male

DRUGS (11)
  1. OMNIPAQUE 140 [Suspect]
     Indication: BLOOD ELECTROLYTES ABNORMAL
     Dosage: 135 ML, SINGLE DOSE, CORONARY
     Dates: start: 20050805, end: 20050805
  2. OMNIPAQUE 140 [Suspect]
     Indication: CHEST PAIN
     Dosage: 135 ML, SINGLE DOSE, CORONARY
     Dates: start: 20050805, end: 20050805
  3. OMNIPAQUE 140 [Suspect]
     Indication: DYSPNOEA
     Dosage: 135 ML, SINGLE DOSE, CORONARY
     Dates: start: 20050805, end: 20050805
  4. VISIPAQUE [Suspect]
     Indication: BLOOD ELECTROLYTES ABNORMAL
     Dosage: 50 ML, SINGLE DOSE, CORONARY
     Dates: start: 20050805, end: 20050805
  5. VISIPAQUE [Suspect]
     Indication: CHEST PAIN
     Dosage: 50 ML, SINGLE DOSE, CORONARY
     Dates: start: 20050805, end: 20050805
  6. VISIPAQUE [Suspect]
     Indication: DYSPNOEA
     Dosage: 50 ML, SINGLE DOSE, CORONARY
     Dates: start: 20050805, end: 20050805
  7. MIDAZOLAM HYDROCHLORIDE [Concomitant]
  8. GLYCERYL TRINITRATE (NITROGLYCERIN) [Concomitant]
  9. ASPIRIN [Concomitant]
  10. BISOPROLOL FUMARATE (ZEBETA) [Concomitant]
  11. CRESTOR [Concomitant]

REACTIONS (4)
  - APHASIA [None]
  - DISORIENTATION [None]
  - PHYSICAL EXAMINATION ABNORMAL [None]
  - POST PROCEDURAL COMPLICATION [None]
